FAERS Safety Report 14930871 (Version 1)
Quarter: 2018Q2

REPORT INFORMATION
  Report Type: Spontaneous
  Country: US (occurrence: US)
  Receive Date: 20180524
  Receipt Date: 20180524
  Transmission Date: 20180711
  Serious: No
  Sender: FDA-Public Use
  Company Number: US-BAUSCH-BL-2017-025483

PATIENT
  Sex: Male

DRUGS (1)
  1. BROMFENAC OPHTHALMIC SOLUTION 0.07% (BROMFENAC SODIUM) [Suspect]
     Active Substance: BROMFENAC SODIUM
     Indication: PRODUCT USED FOR UNKNOWN INDICATION
     Route: 065

REACTIONS (1)
  - Drug prescribing error [Unknown]
